FAERS Safety Report 4970011-6 (Version None)
Quarter: 2006Q2

REPORT INFORMATION
  Report Type: 
  Country: None (occurrence: None)
  Receive Date: 20060412
  Receipt Date: 20060410
  Transmission Date: 20061013
  Serious: Yes (Other)
  Sender: FDA-Public Use
  Company Number: FR-SP-2006-00828

PATIENT

DRUGS (1)
  1. IMMUCYST [Suspect]
     Indication: CARCINOMA IN SITU
     Route: 065

REACTIONS (3)
  - CYSTITIS [None]
  - THERAPY NON-RESPONDER [None]
  - URETHRAL PAIN [None]
